FAERS Safety Report 7020082-0 (Version None)
Quarter: 2010Q3

REPORT INFORMATION
  Report Type: 
  Country: None (occurrence: None)
  Receive Date: 20100929
  Receipt Date: 20100917
  Transmission Date: 20110219
  Serious: Yes (Other)
  Sender: FDA-Public Use
  Company Number: FR-BAYER-201039881GPV

PATIENT

DRUGS (3)
  1. FLUDARABINE [Suspect]
     Indication: NON-HODGKIN'S LYMPHOMA RECURRENT
     Dosage: ON DAYS 2 THROUGH 4
     Route: 042
  2. RITUXIMAB [Suspect]
     Indication: NON-HODGKIN'S LYMPHOMA RECURRENT
     Dosage: ON DAY 1
     Route: 042
  3. MITOXANTRONE [Suspect]
     Indication: NON-HODGKIN'S LYMPHOMA RECURRENT
     Dosage: ON DAY 2 RECYCLING AT DAY 28
     Route: 042

REACTIONS (1)
  - ASTHMA [None]
